FAERS Safety Report 4304540-5 (Version None)
Quarter: 2004Q1

REPORT INFORMATION
  Report Type: 
  Country: None (occurrence: None)
  Receive Date: 20040224
  Receipt Date: 20040211
  Transmission Date: 20041129
  Serious: Yes (Life-Threatening, Hospitalization)
  Sender: FDA-Public Use
  Company Number: 04P-056-0250307-00

PATIENT
  Age: 34 Year
  Sex: Male

DRUGS (2)
  1. ISOPTIN [Suspect]
     Indication: MIGRAINE
     Dosage: 720 MG, 1 IN 1 D, PER ORAL
     Route: 048
  2. SUMATRIPTAN SUCCINATE [Suspect]
     Indication: MIGRAINE
     Dosage: SUBCUTANEOUS
     Route: 058
     Dates: start: 20031108, end: 20031129

REACTIONS (7)
  - ANOXIA [None]
  - COMA [None]
  - ENCEPHALOPATHY [None]
  - MYDRIASIS [None]
  - MYOCARDIAL INFARCTION [None]
  - OVERDOSE [None]
  - SELF-MEDICATION [None]
